FAERS Safety Report 14079975 (Version 4)
Quarter: 2020Q2

REPORT INFORMATION
  Report Type: Spontaneous
  Country: TW (occurrence: TW)
  Receive Date: 20171012
  Receipt Date: 20200611
  Transmission Date: 20200713
  Serious: Yes (Death, Hospitalization, Other)
  Sender: FDA-Public Use
  Company Number: TW-BRISTOL-MYERS SQUIBB COMPANY-BMS-2017-089938

PATIENT
  Age: 49 Year
  Sex: Male
  Weight: 58 kg

DRUGS (1)
  1. OPDIVO [Suspect]
     Active Substance: NIVOLUMAB
     Indication: OESOPHAGEAL SQUAMOUS CELL CARCINOMA
     Dosage: 3 MG/KG, Q2WK
     Route: 042
     Dates: start: 20170705

REACTIONS (10)
  - Haemoptysis [Unknown]
  - Pleural effusion [Unknown]
  - Pneumonia aspiration [Unknown]
  - Haematemesis [Unknown]
  - Intentional product use issue [Unknown]
  - Tumour haemorrhage [Unknown]
  - Malignant neoplasm progression [Unknown]
  - Cellulitis [Unknown]
  - Tumour associated fever [Unknown]
  - Septic shock [Fatal]

NARRATIVE: CASE EVENT DATE: 20170927
